FAERS Safety Report 17845095 (Version 1)
Quarter: 2020Q2

REPORT INFORMATION
  Report Type: Spontaneous
  Country: US (occurrence: US)
  Receive Date: 20200529
  Receipt Date: 20200529
  Transmission Date: 20200714
  Serious: Yes (Hospitalization)
  Sender: FDA-Public Use
  Company Number: None

PATIENT
  Age: 75 Year
  Sex: Female

DRUGS (22)
  1. VENTOLIN [Concomitant]
     Active Substance: ALBUTEROL SULFATE
  2. BUMETADINE [Concomitant]
     Active Substance: BUMETANIDE
  3. LORATADINE. [Concomitant]
     Active Substance: LORATADINE
  4. NIACIN. [Concomitant]
     Active Substance: NIACIN
  5. OXYCODONE AND ACETAMINOPHEN [Concomitant]
     Active Substance: ACETAMINOPHEN\OXYCODONE HYDROCHLORIDE
  6. COSENTYX [Suspect]
     Active Substance: SECUKINUMAB
     Indication: PSORIASIS
     Dosage: ?          OTHER FREQUENCY:Q4WKS;?
     Route: 058
     Dates: start: 20200320
  7. CENTRUM [Concomitant]
     Active Substance: VITAMINS
  8. VITAMIN B-6 [Concomitant]
     Active Substance: PYRIDOXINE
  9. AMLODIPINE [Concomitant]
     Active Substance: AMLODIPINE BESYLATE
  10. ATORVASTATIN [Concomitant]
     Active Substance: ATORVASTATIN
  11. CLOPIDOGREL [Concomitant]
     Active Substance: CLOPIDOGREL BISULFATE
  12. EZETIMIBE. [Concomitant]
     Active Substance: EZETIMIBE
  13. LISINOPRIL. [Concomitant]
     Active Substance: LISINOPRIL
  14. METFORMIN [Concomitant]
     Active Substance: METFORMIN HYDROCHLORIDE
  15. PANTOPRAZOLE [Concomitant]
     Active Substance: PANTOPRAZOLE
  16. NOVOLOG [Concomitant]
     Active Substance: INSULIN ASPART
  17. CALCIUM 600 [Concomitant]
     Active Substance: CALCIUM
  18. FISH OIL [Concomitant]
     Active Substance: FISH OIL
  19. ASPIRIN. [Concomitant]
     Active Substance: ASPIRIN
  20. GABAPENTIN. [Concomitant]
     Active Substance: GABAPENTIN
  21. KLOR-CON10 [Concomitant]
  22. SERTRALINE [Concomitant]
     Active Substance: SERTRALINE HYDROCHLORIDE

REACTIONS (1)
  - Surgery [None]

NARRATIVE: CASE EVENT DATE: 20200529
